FAERS Safety Report 25052933 (Version 1)
Quarter: 2025Q1

REPORT INFORMATION
  Report Type: Spontaneous
  Country: US (occurrence: US)
  Receive Date: 20250307
  Receipt Date: 20250307
  Transmission Date: 20250408
  Serious: No
  Sender: SANOFI AVENTIS
  Company Number: US-SA-2025SA064884

PATIENT
  Age: 2 Month
  Sex: Male
  Weight: 5 kg

DRUGS (1)
  1. DUPIXENT [Suspect]
     Active Substance: DUPILUMAB
     Indication: Dermatitis atopic
     Route: 063
     Dates: start: 202312

REACTIONS (3)
  - Eczema [Unknown]
  - Umbilical hernia [Unknown]
  - Maternal exposure during breast feeding [Unknown]
